FAERS Safety Report 8048495-9 (Version None)
Quarter: 2012Q1

REPORT INFORMATION
  Report Type: 
  Country: None (occurrence: None)
  Receive Date: 20120117
  Receipt Date: 20120103
  Transmission Date: 20120608
  Serious: No
  Sender: FDA-Public Use
  Company Number: US-PFIZER INC-2012001468

PATIENT
  Sex: Female

DRUGS (1)
  1. ESTRING [Suspect]
     Indication: HORMONE REPLACEMENT THERAPY
     Dosage: 0.1 MG, UNK
     Route: 067
     Dates: start: 20090101

REACTIONS (2)
  - HOT FLUSH [None]
  - EXPIRED DRUG ADMINISTERED [None]
